FAERS Safety Report 9256972 (Version 1)
Quarter: 2013Q2

REPORT INFORMATION
  Report Type: Spontaneous
  Country: UY (occurrence: UY)
  Receive Date: 20130426
  Receipt Date: 20130426
  Transmission Date: 20140414
  Serious: Yes (Other)
  Sender: FDA-Public Use
  Company Number: UY-BAYER-2013-042400

PATIENT
  Age: 42 Year
  Sex: Female

DRUGS (1)
  1. MIRENA [Suspect]
     Indication: CONTRACEPTION
     Dosage: UNK
     Route: 015
     Dates: start: 2004

REACTIONS (4)
  - Uterine perforation [Not Recovered/Not Resolved]
  - Device misuse [None]
  - Urinary tract infection [None]
  - Uterine inflammation [None]
